FAERS Safety Report 14467489 (Version 4)
Quarter: 2018Q2

REPORT INFORMATION
  Report Type: Report from Study
  Country: US (occurrence: US)
  Receive Date: 20180131
  Receipt Date: 20180406
  Transmission Date: 20180711
  Serious: Yes (Other)
  Sender: FDA-Public Use
  Company Number: US-GILEAD-2018-0314922

PATIENT
  Age: 44 Year
  Sex: Female

DRUGS (1)
  1. AMBRISENTAN [Suspect]
     Active Substance: AMBRISENTAN
     Indication: PULMONARY ARTERIAL HYPERTENSION
     Dosage: 5 MG, UNK
     Route: 065
     Dates: start: 20141209

REACTIONS (5)
  - Pneumonia [Recovering/Resolving]
  - Cough [Recovering/Resolving]
  - Speech disorder [Recovering/Resolving]
  - Temperature intolerance [Unknown]
  - Malaise [Not Recovered/Not Resolved]
